FAERS Safety Report 8738439 (Version 6)
Quarter: 2014Q2

REPORT INFORMATION
  Report Type: Spontaneous
  Country: US (occurrence: US)
  Receive Date: 20120823
  Receipt Date: 20140428
  Transmission Date: 20141212
  Serious: Yes (Hospitalization, Other)
  Sender: FDA-Public Use
  Company Number: US-009507513-1208USA005634

PATIENT
  Sex: Female
  Weight: 77.98 kg

DRUGS (4)
  1. FOSAMAX [Suspect]
     Indication: OSTEOPENIA
     Dosage: 70 MG, QW
     Route: 048
  2. FOSAMAX [Suspect]
     Indication: OSTEOPOROSIS
     Dosage: UNK DF, QD
     Route: 048
  3. FOSAMAX [Suspect]
     Route: 048
  4. NORVASC [Concomitant]
     Indication: HYPERTENSION

REACTIONS (70)
  - Hip arthroplasty [Unknown]
  - Bone graft [Unknown]
  - Intramedullary rod insertion [Recovered/Resolved]
  - Pulmonary embolism [Unknown]
  - Intramedullary rod insertion [Unknown]
  - Ankle fracture [Unknown]
  - Internal fixation of fracture [Unknown]
  - Internal fixation of fracture [Unknown]
  - Chest pain [Unknown]
  - Adverse reaction [Recovering/Resolving]
  - Pneumonia [Unknown]
  - Anaemia postoperative [Unknown]
  - Acute respiratory failure [Recovered/Resolved]
  - Fall [Unknown]
  - Pathological fracture [Unknown]
  - Fracture nonunion [Unknown]
  - Bone lesion [Unknown]
  - Respiratory failure [Unknown]
  - Pulmonary embolism [Unknown]
  - Hypocalcaemia [Unknown]
  - Femur fracture [Recovered/Resolved]
  - Femur fracture [Recovered/Resolved]
  - Scoliosis [Unknown]
  - Fracture delayed union [Unknown]
  - Hypertension [Unknown]
  - Glaucoma [Unknown]
  - Spinal osteoarthritis [Unknown]
  - Arthritis [Unknown]
  - Spinal disorder [Unknown]
  - Ankle deformity [Unknown]
  - Fracture nonunion [Unknown]
  - Osteoarthritis [Unknown]
  - Exostosis [Unknown]
  - Foot fracture [Unknown]
  - Rib fracture [Unknown]
  - Rib fracture [Unknown]
  - Hypercholesterolaemia [Unknown]
  - Osteoporosis [Unknown]
  - Anxiety [Unknown]
  - Breast lump removal [Unknown]
  - Depression [Unknown]
  - Tonsillectomy [Unknown]
  - Pneumonia [Unknown]
  - Device failure [Unknown]
  - Bone disorder [Unknown]
  - Loose body in joint [Unknown]
  - Nuclear magnetic resonance imaging abnormal [Unknown]
  - Herpes zoster [Unknown]
  - Biopsy breast [Unknown]
  - Medical device removal [Unknown]
  - Spinal disorder [Unknown]
  - Osteomalacia [Unknown]
  - Ventricular extrasystoles [Unknown]
  - Left ventricular hypertrophy [Unknown]
  - Hypertonic bladder [Unknown]
  - Foot fracture [Unknown]
  - Escherichia urinary tract infection [Recovered/Resolved]
  - Nocturia [Unknown]
  - Sleep apnoea syndrome [Unknown]
  - Osteoarthritis [Unknown]
  - Post herpetic neuralgia [Unknown]
  - Breast cyst [Unknown]
  - Lung infiltration [Unknown]
  - Atelectasis [Unknown]
  - Deep vein thrombosis [Unknown]
  - Hiatus hernia [Unknown]
  - Musculoskeletal pain [Not Recovered/Not Resolved]
  - Asthenia [Unknown]
  - Drug ineffective [Unknown]
  - Gastrooesophageal reflux disease [Unknown]
